FAERS Safety Report 16685619 (Version 1)
Quarter: 2019Q3

REPORT INFORMATION
  Report Type: Spontaneous
  Country: US (occurrence: US)
  Receive Date: 20190809
  Receipt Date: 20190809
  Transmission Date: 20191004
  Serious: No
  Sender: FDA-Public Use
  Company Number: US-SA-2019SA213364

PATIENT
  Sex: Male

DRUGS (12)
  1. LEVOTHYROXINE. [Concomitant]
     Active Substance: LEVOTHYROXINE
  2. SODIUM BICARBONATE. [Concomitant]
     Active Substance: SODIUM BICARBONATE
  3. TACROLIMUS. [Concomitant]
     Active Substance: TACROLIMUS
  4. AVODART [Concomitant]
     Active Substance: DUTASTERIDE
  5. KEPPRA [Concomitant]
     Active Substance: LEVETIRACETAM
  6. AMLODIPINE [Concomitant]
     Active Substance: AMLODIPINE BESYLATE
  7. DUPIXENT [Suspect]
     Active Substance: DUPILUMAB
     Indication: DERMATITIS ATOPIC
     Dosage: 300 MG, QOW
     Route: 058
     Dates: start: 20190331
  8. WARFARIN [Concomitant]
     Active Substance: WARFARIN
  9. ASPIRIN. [Concomitant]
     Active Substance: ASPIRIN
  10. SIMVASTATIN. [Concomitant]
     Active Substance: SIMVASTATIN
  11. VITAMIN D3 [Concomitant]
     Active Substance: CHOLECALCIFEROL
  12. METOPROLOL SUCCINATE. [Concomitant]
     Active Substance: METOPROLOL SUCCINATE

REACTIONS (2)
  - Dermatitis atopic [Not Recovered/Not Resolved]
  - Injection site erythema [Not Recovered/Not Resolved]
